FAERS Safety Report 8459940-9 (Version None)
Quarter: 2012Q2

REPORT INFORMATION
  Report Type: 
  Country: None (occurrence: None)
  Receive Date: 20120622
  Receipt Date: 20120619
  Transmission Date: 20120825
  Serious: Yes (Other)
  Sender: FDA-Public Use
  Company Number: PHHY2008JP15837

PATIENT
  Age: 23 Year
  Sex: Male
  Weight: 43 kg

DRUGS (10)
  1. CLARITIN [Concomitant]
     Dosage: 10 MG
     Route: 048
  2. ENALAPRIL MALEATE [Concomitant]
     Dosage: 5 MG
     Route: 048
  3. NEORAL [Concomitant]
     Dosage: 50 MG, PER DAY
     Route: 048
  4. PROTOPIC [Concomitant]
     Dosage: 0.03 %
  5. NEORAL [Concomitant]
     Dosage: 25 MG, PER DAY
     Route: 048
  6. CYCLOSPORINE [Concomitant]
  7. INSULIN [Concomitant]
     Dosage: 18 DF
  8. EXJADE [Suspect]
     Indication: IRON OVERLOAD
     Dosage: 1000 MG, DAILY
     Route: 048
     Dates: start: 20080705, end: 20080730
  9. NEORAL [Concomitant]
     Dosage: 25 MG, PER DAY
     Route: 048
     Dates: start: 20010101
  10. EXJADE [Suspect]
     Dosage: 1000 MG, DAILY
     Route: 048
     Dates: start: 20080809, end: 20080823

REACTIONS (3)
  - DIARRHOEA [None]
  - RASH [None]
  - GRAFT VERSUS HOST DISEASE [None]
